FAERS Safety Report 4889686-5 (Version None)
Quarter: 2006Q1

REPORT INFORMATION
  Report Type: 
  Country: None (occurrence: None)
  Receive Date: 20060120
  Receipt Date: 20060111
  Transmission Date: 20060701
  Serious: Yes (Other)
  Sender: FDA-Public Use
  Company Number: 2005-06-0526

PATIENT
  Age: 67 Year
  Sex: Male
  Weight: 65 kg

DRUGS (4)
  1. PEG-INTRON [Suspect]
     Indication: HEPATITIS C
     Dosage: 100 MCG QW; SUBCUTANEOUS
     Route: 058
     Dates: start: 20050607, end: 20050607
  2. REBETOL [Suspect]
     Indication: HEPATITIS C
     Dosage: 800MG ORAL, 400 MG; ORAL
     Route: 048
     Dates: start: 20050607, end: 20050607
  3. REBETOL [Suspect]
     Indication: HEPATITIS C
     Dosage: 800MG ORAL, 400 MG; ORAL
     Route: 048
     Dates: start: 20050608, end: 20050608
  4. OLMETEC (OLMESARTAN MEDOXOMIL) TABLETS 20 MG [Concomitant]

REACTIONS (3)
  - ANGINA PECTORIS [None]
  - ATRIAL FIBRILLATION [None]
  - ELECTROCARDIOGRAM ST SEGMENT ABNORMAL [None]
